FAERS Safety Report 23365284 (Version 4)
Quarter: 2024Q1

REPORT INFORMATION
  Report Type: Spontaneous
  Country: GB (occurrence: GB)
  Receive Date: 20240104
  Receipt Date: 20240213
  Transmission Date: 20240410
  Serious: Yes (Hospitalization)
  Sender: FDA-Public Use
  Company Number: GB-MYLANLABS-2023M1138239

PATIENT
  Sex: Male

DRUGS (3)
  1. CLOZARIL [Suspect]
     Active Substance: CLOZAPINE
     Indication: Schizophrenia
     Dosage: 400 MILLIGRAM, BID (200 MG IN MORNING - 200 MG IN EVENING)
     Route: 048
     Dates: start: 20100909
  2. CLOZARIL [Suspect]
     Active Substance: CLOZAPINE
     Dosage: 100 MILLIGRAM, QD (NIGHT)
     Route: 065
     Dates: start: 20231220
  3. CLOZARIL [Suspect]
     Active Substance: CLOZAPINE
     Dosage: 300 MILLIGRAM, QD (100 MORNING AND 200 MG NIGHT)
     Route: 065
     Dates: start: 20231221

REACTIONS (4)
  - Hospitalisation [Unknown]
  - Aggression [Unknown]
  - Full blood count abnormal [Unknown]
  - Therapy interrupted [Unknown]

NARRATIVE: CASE EVENT DATE: 20231213
